FAERS Safety Report 13686959 (Version 2)
Quarter: 2017Q2

REPORT INFORMATION
  Report Type: Report from Study
  Country: None (occurrence: CA)
  Receive Date: 20170623
  Receipt Date: 20170630
  Transmission Date: 20170830
  Serious: Yes (Life-Threatening, Hospitalization)
  Sender: FDA-Public Use
  Company Number: CA-ABBVIE-17P-028-2015491-00

PATIENT
  Age: 41 Year
  Sex: Female
  Weight: 58 kg

DRUGS (9)
  1. CLONAZAPAM [Concomitant]
     Active Substance: CLONAZEPAM
     Indication: BIPOLAR DISORDER
     Dates: start: 20140402
  2. PHOTOTHERAPY [Concomitant]
     Indication: PSORIASIS
     Dates: start: 20091109
  3. CLONAZAPAM [Concomitant]
     Active Substance: CLONAZEPAM
     Indication: ANXIETY
     Dates: start: 20140402
  4. ARISTOCORT [Concomitant]
     Active Substance: TRIAMCINOLONE DIACETATE
     Indication: PSORIASIS
     Dosage: 1 APPLICATION
     Dates: start: 2010
  5. UVB THERAPY [Concomitant]
     Indication: PSORIASIS
     Dosage: TOTAL DOSAGE 1^17^. COMES ONE-TWO TIMES A WEEK
     Dates: start: 20091109, end: 20100512
  6. EPIVAL [Concomitant]
     Active Substance: DIVALPROEX SODIUM
     Indication: DEPRESSION
     Dates: start: 20140402
  7. ATARAX [Concomitant]
     Active Substance: HYDROXYZINE HYDROCHLORIDE
     Indication: PSORIASIS
     Dosage: 25 MG OR 50 MG
     Dates: start: 2010
  8. HUMIRA [Suspect]
     Active Substance: ADALIMUMAB
     Route: 058
     Dates: end: 20100901
  9. HUMIRA [Suspect]
     Active Substance: ADALIMUMAB
     Indication: PSORIASIS
     Route: 058
     Dates: start: 20100303, end: 20100303

REACTIONS (1)
  - Intentional overdose [Recovered/Resolved]

NARRATIVE: CASE EVENT DATE: 20170512
